FAERS Safety Report 11881894 (Version 1)
Quarter: 2015Q4

REPORT INFORMATION
  Report Type: Spontaneous
  Country: US (occurrence: None)
  Receive Date: 20151230
  Receipt Date: 20151230
  Transmission Date: 20160305
  Serious: Yes (Hospitalization, Other)
  Sender: FDA-Public Use
  Company Number: None

PATIENT
  Sex: Male
  Weight: 65.77 kg

DRUGS (9)
  1. COMBIGAN [Concomitant]
     Active Substance: BRIMONIDINE TARTRATE\TIMOLOL MALEATE
  2. OMEGA-3 ACIDS [Concomitant]
     Active Substance: OMEGA-3 FATTY ACIDS
  3. ASPIRIN. [Concomitant]
     Active Substance: ASPIRIN
  4. NORVASC [Concomitant]
     Active Substance: AMLODIPINE BESYLATE
  5. VITAMIN D3 [Concomitant]
     Active Substance: CHOLECALCIFEROL
  6. NEURONTIN [Suspect]
     Active Substance: GABAPENTIN
     Indication: NERVE INJURY
     Dosage: PROGRESSIVE USE BEGIN WITH ONE A DAY TO 4 TWICE A DAY
     Route: 048
     Dates: start: 20151118, end: 20151124
  7. CALCITRIOL. [Concomitant]
     Active Substance: CALCITRIOL
  8. ZETIA [Concomitant]
     Active Substance: EZETIMIBE
  9. COQ10 [Concomitant]
     Active Substance: UBIDECARENONE

REACTIONS (4)
  - Blood potassium abnormal [None]
  - Nervousness [None]
  - Mental impairment [None]
  - Speech disorder [None]
